FAERS Safety Report 6146677-4 (Version None)
Quarter: 2009Q2

REPORT INFORMATION
  Report Type: 
  Country: None (occurrence: None)
  Receive Date: 20090407
  Receipt Date: 20090331
  Transmission Date: 20091009
  Serious: Yes (Death, Hospitalization)
  Sender: FDA-Public Use
  Company Number: CA-AMGEN-US265745

PATIENT
  Sex: Male

DRUGS (13)
  1. PANITUMUMAB [Suspect]
     Indication: COLORECTAL CANCER
     Route: 042
     Dates: start: 20070725, end: 20080116
  2. OXALIPLATIN [Concomitant]
     Route: 042
     Dates: start: 20070725, end: 20080116
  3. FLUOROURACIL [Concomitant]
     Route: 042
     Dates: start: 20070725, end: 20080119
  4. LEUCOVORIN CALCIUM [Concomitant]
     Route: 042
     Dates: start: 20070725, end: 20080117
  5. METAMUCIL [Concomitant]
     Route: 048
  6. VALIUM [Concomitant]
     Route: 048
  7. CHLORPHENIRAMINE MALEATE [Concomitant]
     Route: 048
  8. ZANTAC [Concomitant]
     Route: 048
  9. BENADRYL [Concomitant]
     Route: 048
  10. ZOPICLONE [Concomitant]
     Route: 048
  11. SERTRALINE HCL [Concomitant]
     Route: 048
  12. MORPHINE [Concomitant]
     Route: 048
  13. MAGNESIUM SULFATE [Concomitant]
     Route: 048

REACTIONS (3)
  - COLORECTAL CANCER METASTATIC [None]
  - DEHYDRATION [None]
  - INTESTINAL OBSTRUCTION [None]
